FAERS Safety Report 22286658 (Version 1)
Quarter: 2023Q2

REPORT INFORMATION
  Report Type: Spontaneous
  Country: GB (occurrence: GB)
  Receive Date: 20230505
  Receipt Date: 20230505
  Transmission Date: 20230722
  Serious: Yes (Hospitalization)
  Sender: FDA-Public Use
  Company Number: None

PATIENT
  Age: 84 Year
  Sex: Male

DRUGS (16)
  1. PREGABALIN [Suspect]
     Active Substance: PREGABALIN
     Indication: Product used for unknown indication
     Dosage: 150 MILLIGRAM, QD (PER DAY)
     Route: 065
  2. OXYCODONE HYDROCHLORIDE [Suspect]
     Active Substance: OXYCODONE HYDROCHLORIDE
     Indication: Product used for unknown indication
     Dosage: 10 MILLIGRAM, QD (PER DAY) (MODIFIED-RELEASE TABLET) (ONLY 14 TABS SUPPLIED 10/3/23)
     Route: 065
  3. COCODAMOL [Suspect]
     Active Substance: ACETAMINOPHEN\CODEINE PHOSPHATE
     Indication: Product used for unknown indication
     Dosage: 8 DOSAGE FORM, QD (PER DAY) (TABLET) (30/500MG)
     Route: 065
     Dates: start: 20230329
  4. AMLODIPINE [Concomitant]
     Active Substance: AMLODIPINE BESYLATE
     Indication: Product used for unknown indication
     Dosage: 5 MILLIGRAM, QD (PER DAY) (MORNING)
     Route: 065
  5. CANDESARTAN [Concomitant]
     Active Substance: CANDESARTAN
     Indication: Product used for unknown indication
     Dosage: 8 MILLIGRAM, QD (PER DAY) (MORNING)
     Route: 065
  6. Cavilon barrier cream [Concomitant]
     Indication: Product used for unknown indication
     Dosage: UNK, APPLY THREE TIMES DAILY (TDS) TAKE AS REQUIRED (PRN)
     Route: 065
  7. CLOPIDOGREL [Concomitant]
     Active Substance: CLOPIDOGREL BISULFATE
     Indication: Product used for unknown indication
     Dosage: 75 MILLIGRAM, QD (PER DAY) (MORNING)
     Route: 065
  8. CHLOROCRESOL [Concomitant]
     Active Substance: CHLOROCRESOL
     Indication: Product used for unknown indication
     Dosage: UNK, CREAM (APPLY TO DRY SKIN ON FEET) (BAYER PLC)
     Route: 065
  9. FENBID [Concomitant]
     Indication: Product used for unknown indication
     Dosage: 1 DOSAGE FORM, PRN (AS NECESSARY) (THREE TIMES A DAY) GEL
     Route: 065
  10. LANSOPRAZOLE [Concomitant]
     Active Substance: LANSOPRAZOLE
     Indication: Product used for unknown indication
     Dosage: 15 MILLIGRAM, QD (PER DAY) (MORNING)
     Route: 065
  11. POLYETHYLENE GLYCOL 3350\POTASSIUM CHLORIDE\SODIUM BICARBONATE\SODIUM [Concomitant]
     Active Substance: POLYETHYLENE GLYCOL 3350\POTASSIUM CHLORIDE\SODIUM BICARBONATE\SODIUM CHLORIDE
     Indication: Product used for unknown indication
     Dosage: 4 DOSAGE FORM, (2 SACHETS) QD (PER DAY)
     Route: 065
  12. METFORMIN [Concomitant]
     Active Substance: METFORMIN HYDROCHLORIDE
     Indication: Product used for unknown indication
     Dosage: 1000 MILLIGRAM, QD (PER DAY) (MODIFIED RELEASE)
     Route: 065
  13. Phosphate sandoz effervescent [Concomitant]
     Indication: Product used for unknown indication
     Dosage: UNK, EFFERVESCENT TABLET, TID (TABLETS THREE TIMES A DAY)
     Route: 065
  14. ProSource Plus [Concomitant]
     Indication: Product used for unknown indication
     Dosage: UNK, LIQUID 30ML SACHETS, 1 SACHET TAKEN TWICE DAILY, BID
     Route: 065
  15. SENNA [Concomitant]
     Active Substance: SENNA LEAF\SENNOSIDES\SENNOSIDES A AND B
     Indication: Product used for unknown indication
     Dosage: 15 MILLIGRAM, HS (PER DAY) (NIGHT)
     Route: 065
  16. MINERAL OIL [Concomitant]
     Active Substance: MINERAL OIL
     Indication: Product used for unknown indication
     Dosage: 1 DOSAGE FORM, PRN (AS NECESSARY) (CREAM)
     Route: 065

REACTIONS (1)
  - Toxicity to various agents [Unknown]
